FAERS Safety Report 18493219 (Version 3)
Quarter: 2020Q4

REPORT INFORMATION
  Report Type: Report from Study
  Country: None (occurrence: NO)
  Receive Date: 20201112
  Receipt Date: 20201210
  Transmission Date: 20210114
  Serious: Yes (Hospitalization, Other)
  Sender: FDA-Public Use
  Company Number: NO-ABBVIE-20K-122-3640068-00

PATIENT
  Age: 74 Year
  Sex: Male

DRUGS (3)
  1. MORPHINE [Suspect]
     Active Substance: MORPHINE
     Indication: PRODUCT USED FOR UNKNOWN INDICATION
     Route: 050
  2. DUODOPA [Suspect]
     Active Substance: CARBIDOPA\LEVODOPA
     Indication: PRODUCT USED FOR UNKNOWN INDICATION
     Dosage: MORNING DOSE: 11 ML
     Route: 050
  3. DUODOPA [Suspect]
     Active Substance: CARBIDOPA\LEVODOPA
     Route: 050

REACTIONS (12)
  - Drug administered in wrong device [Recovered/Resolved]
  - Pneumonia [Unknown]
  - Adverse drug reaction [Unknown]
  - Wrong product administered [Unknown]
  - General physical health deterioration [Unknown]
  - Rib fracture [Not Recovered/Not Resolved]
  - Urinary retention [Unknown]
  - Respiratory arrest [Unknown]
  - Feeling abnormal [Unknown]
  - Overdose [Unknown]
  - Cyanosis [Recovered/Resolved]
  - Dyspnoea [Unknown]

NARRATIVE: CASE EVENT DATE: 202011
